FAERS Safety Report 10439387 (Version 1)
Quarter: 2014Q3

REPORT INFORMATION
  Report Type: Spontaneous
  Country: US (occurrence: US)
  Receive Date: 20140908
  Receipt Date: 20140908
  Transmission Date: 20150326
  Serious: No
  Sender: FDA-Public Use
  Company Number: US-BRISTOL-MYERS SQUIBB COMPANY-20615340

PATIENT
  Age: 9 Year
  Sex: Male
  Weight: 24.94 kg

DRUGS (3)
  1. CONCERTA [Concomitant]
     Active Substance: METHYLPHENIDATE HYDROCHLORIDE
  2. ABILIFY [Suspect]
     Active Substance: ARIPIPRAZOLE
     Indication: BIPOLAR DISORDER
     Dosage: TAKES 1/2 TABLET EVERY NIGHT,ABILIFY 5MG ABOUT SIX TO EIGHT MONTHS AGO
  3. ABILIFY [Suspect]
     Active Substance: ARIPIPRAZOLE
     Indication: PHYSICAL ABUSE
     Dosage: TAKES 1/2 TABLET EVERY NIGHT,ABILIFY 5MG ABOUT SIX TO EIGHT MONTHS AGO

REACTIONS (2)
  - Off label use [Unknown]
  - Wrong technique in drug usage process [Unknown]
